FAERS Safety Report 5131993-5 (Version None)
Quarter: 2006Q4

REPORT INFORMATION
  Report Type: 
  Country: None (occurrence: None)
  Receive Date: 20061017
  Receipt Date: 20061004
  Transmission Date: 20070319
  Serious: Yes (Hospitalization)
  Sender: FDA-Public Use
  Company Number: 2006123976

PATIENT
  Age: 54 Year
  Sex: Male
  Weight: 86.1834 kg

DRUGS (4)
  1. BEXTRA [Suspect]
     Indication: GOUT
     Dosage: 10 MG (10 MG, 1 IN 1 D)
     Dates: start: 20020401, end: 20030401
  2. LIPITOR [Concomitant]
  3. CORTISONE ACETATE [Concomitant]
  4. METFORMIN HCL [Concomitant]

REACTIONS (1)
  - CEREBROVASCULAR ACCIDENT [None]
